FAERS Safety Report 9644682 (Version 2)
Quarter: 2015Q2

REPORT INFORMATION
  Report Type: Spontaneous
  Country: US (occurrence: US)
  Receive Date: 20131025
  Receipt Date: 20150603
  Transmission Date: 20150821
  Serious: Yes (Hospitalization)
  Sender: FDA-Public Use
  Company Number: US-BAYER-2013-128045

PATIENT
  Age: 21 Year
  Sex: Female
  Weight: 68.03 kg

DRUGS (12)
  1. YAZ [Suspect]
     Active Substance: DROSPIRENONE\ETHINYL ESTRADIOL
     Dosage: UNK
     Dates: start: 20060109, end: 20090526
  2. OCELLA [Suspect]
     Active Substance: DROSPIRENONE\ETHINYL ESTRADIOL
     Dosage: UNK
     Dates: start: 20060109, end: 20090526
  3. GENTAMICIN. [Concomitant]
     Active Substance: GENTAMICIN
  4. CANESTEN [Concomitant]
     Active Substance: CLOTRIMAZOLE
  5. GIANVI [Suspect]
     Active Substance: DROSPIRENONE\ETHINYL ESTRADIOL
     Dosage: UNK
     Dates: start: 20060109, end: 20090526
  6. PARACETAMOL [Concomitant]
     Active Substance: ACETAMINOPHEN
  7. KEFLIN [Concomitant]
     Active Substance: CEPHALOTHIN SODIUM
  8. YASMIN [Suspect]
     Active Substance: DROSPIRENONE\ETHINYL ESTRADIOL
     Dosage: UNK
     Dates: start: 20060109, end: 20090526
  9. MORPHINE [Concomitant]
     Active Substance: MORPHINE
     Indication: PAIN
  10. CEPHALEXIN. [Concomitant]
     Active Substance: CEPHALEXIN
     Indication: EAR INFECTION
     Dosage: 500 MG, BID
     Dates: start: 20090526
  11. PANADOL [Concomitant]
     Active Substance: ACETAMINOPHEN
     Indication: PAIN
  12. NUROFEN [Concomitant]
     Active Substance: IBUPROFEN
     Indication: PAIN

REACTIONS (6)
  - Pelvic venous thrombosis [Recovered/Resolved]
  - Deep vein thrombosis [Recovered/Resolved]
  - Emotional distress [None]
  - Injury [Recovered/Resolved]
  - Pulmonary embolism [Recovered/Resolved]
  - Pain [Recovered/Resolved]

NARRATIVE: CASE EVENT DATE: 20090526
